FAERS Safety Report 7491874-9 (Version None)
Quarter: 2011Q2

REPORT INFORMATION
  Report Type: 
  Country: None (occurrence: None)
  Receive Date: 20110518
  Receipt Date: 20110518
  Transmission Date: 20111010
  Serious: Yes (Hospitalization)
  Sender: FDA-Public Use
  Company Number: None

PATIENT
  Sex: Female
  Weight: 99.97 kg

DRUGS (3)
  1. NEULASTA [Suspect]
     Dosage: 6 MG
  2. TAXOL [Suspect]
     Dosage: 350 MG
  3. CARBOPLATIN [Suspect]
     Dosage: 840 MG

REACTIONS (8)
  - VOMITING [None]
  - DIARRHOEA [None]
  - HAEMOGLOBIN DECREASED [None]
  - DEHYDRATION [None]
  - NAUSEA [None]
  - URINARY TRACT INFECTION [None]
  - ASTHENIA [None]
  - FATIGUE [None]
